FAERS Safety Report 8485979-3 (Version None)
Quarter: 2012Q3

REPORT INFORMATION
  Report Type: 
  Country: None (occurrence: None)
  Receive Date: 20120703
  Receipt Date: 20120622
  Transmission Date: 20120928
  Serious: Yes (Hospitalization)
  Sender: FDA-Public Use
  Company Number: US-SANOFI-AVENTIS-2012SA044770

PATIENT
  Age: 67 Year
  Sex: Male

DRUGS (2)
  1. LANTUS [Suspect]
     Dosage: DOSE:14 UNIT(S)
     Route: 058
     Dates: start: 20101101
  2. SOLOSTAR [Suspect]
     Dates: start: 20101101

REACTIONS (3)
  - PROSTATIC DISORDER [None]
  - HYPONATRAEMIA [None]
  - BLOOD GLUCOSE INCREASED [None]
